FAERS Safety Report 8511923-6 (Version None)
Quarter: 2012Q3

REPORT INFORMATION
  Report Type: 
  Country: None (occurrence: None)
  Receive Date: 20120716
  Receipt Date: 20120712
  Transmission Date: 20120928
  Serious: Yes (Death)
  Sender: FDA-Public Use
  Company Number: PHEH2012US013794

PATIENT
  Sex: Female

DRUGS (4)
  1. XANAX [Concomitant]
     Dosage: 0.5 MG, QHS
     Route: 048
  2. MICARDIS [Concomitant]
     Dosage: 40 MG, QD
     Route: 048
  3. EFFEXOR [Concomitant]
     Dosage: 50 MG, QHS
     Route: 048
  4. RECLAST [Suspect]
     Route: 042
     Dates: start: 20110815

REACTIONS (1)
  - DEATH [None]
